FAERS Safety Report 9915849 (Version 1)
Quarter: 2014Q1

REPORT INFORMATION
  Report Type: Spontaneous
  Country: US (occurrence: None)
  Receive Date: 20140219
  Receipt Date: 20140219
  Transmission Date: 20141002
  Serious: Yes (Hospitalization)
  Sender: FDA-Public Use
  Company Number: None

PATIENT
  Age: 58 Year
  Sex: Female
  Weight: 54.43 kg

DRUGS (2)
  1. TRANSDERM SCOPE [Suspect]
     Indication: PROCEDURAL NAUSEA
     Dosage: 4 EVERY THREE DAYS  APPLIED AS MEDICATED PATCH TO SKIN
     Dates: start: 20140206, end: 20140206
  2. TRANSDERM SCOPE [Suspect]
     Indication: PROCEDURAL DIZZINESS
     Dosage: 4 EVERY THREE DAYS  APPLIED AS MEDICATED PATCH TO SKIN
     Dates: start: 20140206, end: 20140206

REACTIONS (2)
  - Nausea [None]
  - Dizziness [None]
